FAERS Safety Report 25836568 (Version 1)
Quarter: 2025Q3

REPORT INFORMATION
  Report Type: Spontaneous
  Country: US (occurrence: None)
  Receive Date: 20250923
  Receipt Date: 20250923
  Transmission Date: 20251020
  Serious: No
  Sender: FDA-CTU
  Company Number: None

PATIENT
  Age: 84 Year
  Sex: Female

DRUGS (1)
  1. ODOMZO [Suspect]
     Active Substance: SONIDEGIB
     Indication: Basal cell carcinoma
     Dosage: TAKE 1 TABLET BY MOUTH DAILY ON EMPTY STOMACH  AS DIRECTED
     Route: 048
     Dates: start: 202507

REACTIONS (2)
  - Fall [None]
  - Hip fracture [None]
